FAERS Safety Report 5009528-7 (Version None)
Quarter: 2006Q2

REPORT INFORMATION
  Report Type: 
  Country: None (occurrence: None)
  Receive Date: 20060524
  Receipt Date: 20001012
  Transmission Date: 20061013
  Serious: Yes (Hospitalization, Other)
  Sender: FDA-Public Use
  Company Number: PHFR2000GB01627

PATIENT
  Age: 60 Year
  Sex: Male

DRUGS (4)
  1. RANITIDINE [Concomitant]
     Dosage: 150 MG, BID
     Route: 048
  2. VOLTAREN-XR [Suspect]
     Indication: OSTEOARTHRITIS
     Dosage: 75 MG, BID
     Route: 048
     Dates: end: 20000914
  3. THEOPHYLLINE [Concomitant]
     Indication: ASTHMA
     Dosage: 200 MG, BID
     Route: 048
  4. BECLOMETHASONE DIPROPIONATE [Concomitant]
     Indication: ASTHMA

REACTIONS (1)
  - MICROCYTIC ANAEMIA [None]
